FAERS Safety Report 12741537 (Version 5)
Quarter: 2016Q3

REPORT INFORMATION
  Report Type: Spontaneous
  Country: IT (occurrence: IT)
  Receive Date: 20160914
  Receipt Date: 20160929
  Transmission Date: 20161109
  Serious: Yes (Hospitalization)
  Sender: FDA-Public Use
  Company Number: IT-TEVA-691230ACC

PATIENT
  Age: 63 Year
  Sex: Female
  Weight: 63 kg

DRUGS (7)
  1. RAMIPRIL. [Suspect]
     Active Substance: RAMIPRIL
     Indication: HYPERTENSION
     Dosage: 10 MILLIGRAM DAILY;
     Route: 048
  2. NILOTINIB [Suspect]
     Active Substance: NILOTINIB
     Indication: CHRONIC MYELOID LEUKAEMIA
     Dosage: 600 MILLIGRAM DAILY;
     Route: 048
     Dates: start: 20150212, end: 20150304
  3. MOVICOL - 13.8 G POLVERE PER SOLUZIONE ORALE [Concomitant]
     Indication: PRODUCT USED FOR UNKNOWN INDICATION
     Dates: start: 20151117
  4. NEXIUM [Concomitant]
     Active Substance: ESOMEPRAZOLE MAGNESIUM
     Indication: PRODUCT USED FOR UNKNOWN INDICATION
     Dates: start: 20150212
  5. EUTIROX - 25 MICROGRAMMI COMPRESSE [Concomitant]
     Active Substance: LEVOTHYROXINE SODIUM
     Indication: PRODUCT USED FOR UNKNOWN INDICATION
     Dates: start: 1995
  6. RAMIPRIL. [Suspect]
     Active Substance: RAMIPRIL
     Dates: start: 201511
  7. SENNA CONCENTRATE EXTRACT [Concomitant]
     Indication: PRODUCT USED FOR UNKNOWN INDICATION
     Dates: start: 20151117

REACTIONS (6)
  - Vomiting [Unknown]
  - Gastritis [Unknown]
  - Nausea [Unknown]
  - Syncope [Unknown]
  - Abdominal pain upper [Unknown]
  - Constipation [Unknown]

NARRATIVE: CASE EVENT DATE: 20150223
